FAERS Safety Report 7992147-8 (Version None)
Quarter: 2011Q4

REPORT INFORMATION
  Report Type: 
  Country: None (occurrence: None)
  Receive Date: 20111219
  Receipt Date: 20101207
  Transmission Date: 20120403
  Serious: No
  Sender: FDA-Public Use
  Company Number: US-ASTRAZENECA-2010SE58084

PATIENT
  Sex: Male

DRUGS (4)
  1. CRESTOR [Suspect]
     Route: 048
  2. MULTI-VITAMIN [Concomitant]
  3. ALLVILLE [Concomitant]
     Dosage: 300MG/12.5
  4. IBUPROFEN [Concomitant]

REACTIONS (2)
  - BLOOD CREATININE INCREASED [None]
  - NEUROMYOPATHY [None]
